FAERS Safety Report 7089448-7 (Version None)
Quarter: 2010Q4

REPORT INFORMATION
  Report Type: 
  Country: None (occurrence: None)
  Receive Date: 20101029
  Receipt Date: 20101020
  Transmission Date: 20110411
  Serious: Yes (Other)
  Sender: FDA-Public Use
  Company Number: 2010SP056286

PATIENT

DRUGS (2)
  1. PEG-INTRON [Suspect]
     Indication: LIVER DISORDER
     Dosage: SC
     Route: 058
  2. REBETOL [Suspect]
     Indication: LIVER DISORDER
     Dosage: PO
     Route: 048

REACTIONS (1)
  - MENINGITIS [None]
